FAERS Safety Report 9693361 (Version 3)
Quarter: 2014Q1

REPORT INFORMATION
  Report Type: Report from Study
  Country: AU (occurrence: AU)
  Receive Date: 20131118
  Receipt Date: 20140318
  Transmission Date: 20141002
  Serious: Yes (Other)
  Sender: FDA-Public Use
  Company Number: AU-ROCHE-1304291

PATIENT
  Age: 82 Year
  Sex: Female

DRUGS (1)
  1. RANIBIZUMAB [Suspect]
     Indication: PRODUCT USED FOR UNKNOWN INDICATION
     Dosage: IN 0.05ML
     Route: 050
     Dates: start: 20120714, end: 20131109

REACTIONS (3)
  - Endophthalmitis [Not Recovered/Not Resolved]
  - Choroidal neovascularisation [Not Recovered/Not Resolved]
  - Medication error [Unknown]
